FAERS Safety Report 16153448 (Version 1)
Quarter: 2019Q2

REPORT INFORMATION
  Report Type: Spontaneous
  Country: LB (occurrence: LB)
  Receive Date: 20190403
  Receipt Date: 20190403
  Transmission Date: 20190711
  Serious: Yes (Other)
  Sender: FDA-Public Use
  Company Number: LB-ROCHE-2289375

PATIENT

DRUGS (1)
  1. TECENTRIQ [Suspect]
     Active Substance: ATEZOLIZUMAB
     Indication: TRIPLE NEGATIVE BREAST CANCER
     Route: 065

REACTIONS (7)
  - Metastases to liver [Unknown]
  - Bone lesion [Unknown]
  - Off label use [Unknown]
  - Pulmonary mass [Unknown]
  - Bone pain [Unknown]
  - Intentional product use issue [Unknown]
  - Pleural thickening [Unknown]
